FAERS Safety Report 6443662-X (Version None)
Quarter: 2009Q4

REPORT INFORMATION
  Report Type: 
  Country: None (occurrence: None)
  Receive Date: 20091117
  Receipt Date: 20091111
  Transmission Date: 20100525
  Serious: Yes (Death, Other)
  Sender: FDA-Public Use
  Company Number: PHHY2009BR50008

PATIENT
  Sex: Male

DRUGS (5)
  1. DIOVAN [Suspect]
  2. CITALOPRAM HYDROBROMIDE [Concomitant]
  3. KIKCS [Concomitant]
  4. AAS [Concomitant]
  5. GLIBENCLAMIDE [Concomitant]

REACTIONS (3)
  - DEATH [None]
  - DEMENTIA ALZHEIMER'S TYPE [None]
  - SLEEP DISORDER [None]
